FAERS Safety Report 19708027 (Version 1)
Quarter: 2021Q3

REPORT INFORMATION
  Report Type: Spontaneous
  Country: US (occurrence: US)
  Receive Date: 20210817
  Receipt Date: 20210817
  Transmission Date: 20211014
  Serious: No
  Sender: FDA-Public Use
  Company Number: US-ASTRAZENECA-2021A008714

PATIENT
  Age: 27552 Day
  Sex: Female

DRUGS (1)
  1. BUDESONIDE/FORMOTEROL FUMARATE DIHYDRATE [Suspect]
     Active Substance: BUDESONIDE\FORMOTEROL FUMARATE DIHYDRATE
     Indication: ASTHMA
     Dosage: 160/4.5 120 INHALATIONS, UNKNOWN UNKNOWN
     Route: 055

REACTIONS (4)
  - Asthma [Not Recovered/Not Resolved]
  - Incorrect dose administered by device [Unknown]
  - Device malfunction [Unknown]
  - Intentional device misuse [Unknown]

NARRATIVE: CASE EVENT DATE: 20210103
